FAERS Safety Report 8273513-2 (Version None)
Quarter: 2012Q2

REPORT INFORMATION
  Report Type: 
  Country: None (occurrence: None)
  Receive Date: 20120411
  Receipt Date: 20120402
  Transmission Date: 20120825
  Serious: Yes (Other)
  Sender: FDA-Public Use
  Company Number: CA-UCBSA-054625

PATIENT
  Age: 74 Year
  Sex: Female
  Weight: 61.7 kg

DRUGS (1)
  1. CIMZIA [Suspect]
     Indication: RHEUMATOID ARTHRITIS
     Route: 058
     Dates: start: 20120110, end: 20120306

REACTIONS (3)
  - BACTERIAL INFECTION [None]
  - VOMITING [None]
  - HAEMOGLOBIN DECREASED [None]
